FAERS Safety Report 11831348 (Version 1)
Quarter: 2015Q4

REPORT INFORMATION
  Report Type: Spontaneous
  Country: PH (occurrence: PH)
  Receive Date: 20151214
  Receipt Date: 20151214
  Transmission Date: 20160305
  Serious: Yes (Hospitalization)
  Sender: FDA-Public Use
  Company Number: PH-009507513-1512PHL006083

PATIENT
  Age: 74 Year
  Sex: Female

DRUGS (4)
  1. AMLODIPINE [Concomitant]
     Active Substance: AMLODIPINE BESYLATE
     Dosage: 10MG ONCE A DAY
  2. LOSARTAN POTASSIUM. [Concomitant]
     Active Substance: LOSARTAN POTASSIUM
     Dosage: 50MG ONCE A DAY
  3. JANUVIA [Suspect]
     Active Substance: SITAGLIPTIN PHOSPHATE
     Indication: DIABETES MELLITUS
     Dosage: 50MG, QD (ONE TABLET, ONCE A DAY)
     Route: 048
     Dates: start: 2013
  4. INSULIN [Concomitant]
     Active Substance: INSULIN NOS
     Indication: BLOOD GLUCOSE INCREASED
     Dosage: UNK, ONCE A DAY

REACTIONS (2)
  - Dyspnoea [Recovering/Resolving]
  - Pulmonary oedema [Recovering/Resolving]

NARRATIVE: CASE EVENT DATE: 201512
